FAERS Safety Report 7405564-1 (Version None)
Quarter: 2011Q2

REPORT INFORMATION
  Report Type: 
  Country: None (occurrence: None)
  Receive Date: 20110408
  Receipt Date: 20110325
  Transmission Date: 20111010
  Serious: No
  Sender: FDA-Public Use
  Company Number: DL2011-0233

PATIENT
  Age: 30 Year
  Sex: Female

DRUGS (3)
  1. MISOPROSTOL [Suspect]
     Dosage: 800 MCG, BUCCAL
     Route: 002
     Dates: start: 20110304
  2. MIFEPREX [Suspect]
     Indication: ABORTION INDUCED
     Dosage: 200 MG, ORAL
     Route: 048
     Dates: start: 20110302
  3. DOXYCYCLINE [Concomitant]

REACTIONS (4)
  - FATIGUE [None]
  - HAEMORRHAGE [None]
  - SYNCOPE [None]
  - MUSCLE STRAIN [None]
